FAERS Safety Report 8102049 (Version 3)
Quarter: 2013Q4

REPORT INFORMATION
  Report Type: Spontaneous
  Country: US (occurrence: US)
  Receive Date: 20110823
  Receipt Date: 20131127
  Transmission Date: 20140711
  Serious: Yes (Hospitalization, Other)
  Sender: FDA-Public Use
  Company Number: US-BAYER-2011-074983

PATIENT
  Age: 21 Year
  Sex: Female
  Weight: 81 kg

DRUGS (16)
  1. YASMIN [Suspect]
     Dosage: UNK
     Dates: start: 200608, end: 200811
  2. IBUPROFEN [Concomitant]
     Route: 048
  3. ONDANSETRON [Concomitant]
     Dosage: 8 MG, UNK
  4. LIDOCAINE [Concomitant]
     Dosage: 2 UNK, UNK
  5. HYDROCODONE W/ACETAMINOPHEN [Concomitant]
  6. PENICILLIN VK [Concomitant]
     Dosage: 500 MG, UNK
  7. FAMOTIDINE [Concomitant]
     Dosage: 40 MG, UNK
  8. FLUTICASONE [Concomitant]
  9. FLUOXETINE [Concomitant]
  10. CYCLOBENZAPRINE [Concomitant]
  11. NAPROXEN [Concomitant]
  12. VICODIN [Concomitant]
  13. KEFLEX [Concomitant]
  14. COLACE [Concomitant]
  15. NORCO [Concomitant]
  16. BACITRACIN [Concomitant]

REACTIONS (4)
  - Gallbladder injury [None]
  - Injury [None]
  - Cholelithiasis [None]
  - Pancreatitis [None]
